FAERS Safety Report 8616854-9 (Version None)
Quarter: 2012Q3

REPORT INFORMATION
  Report Type: 
  Country: None (occurrence: None)
  Receive Date: 20120823
  Receipt Date: 20120808
  Transmission Date: 20120928
  Serious: No
  Sender: FDA-Public Use
  Company Number: US-009507513-1208USA004027

PATIENT

DRUGS (3)
  1. TELAPREVIR [Suspect]
  2. RIBAVIRIN [Suspect]
  3. PEG-INTRON [Suspect]
     Indication: HEPATITIS C
     Dosage: 150 MICROGRAM, QW

REACTIONS (1)
  - ADVERSE EVENT [None]
